FAERS Safety Report 4778583-1 (Version None)
Quarter: 2005Q3

REPORT INFORMATION
  Report Type: 
  Country: None (occurrence: None)
  Receive Date: 20050926
  Receipt Date: 20050915
  Transmission Date: 20060218
  Serious: Yes (Hospitalization)
  Sender: FDA-Public Use
  Company Number: PHBS2005US13654

PATIENT
  Age: 27 Year
  Sex: Female

DRUGS (1)
  1. METOPROLOL [Suspect]
     Indication: MITRAL VALVE STENOSIS

REACTIONS (7)
  - CONFUSIONAL STATE [None]
  - DRUG EXPOSURE DURING PREGNANCY [None]
  - DYSARTHRIA [None]
  - EMBOLIC STROKE [None]
  - HEMIPARESIS [None]
  - MOTOR DYSFUNCTION [None]
  - PREMATURE LABOUR [None]
